FAERS Safety Report 14128152 (Version 2)
Quarter: 2017Q4

REPORT INFORMATION
  Report Type: Spontaneous
  Country: AR (occurrence: AR)
  Receive Date: 20171026
  Receipt Date: 20171212
  Transmission Date: 20180321
  Serious: Yes (Other)
  Sender: FDA-Public Use
  Company Number: AR-GILEAD-2017-0301042

PATIENT
  Age: 79 Year
  Sex: Female

DRUGS (2)
  1. SILDENAFIL. [Concomitant]
     Active Substance: SILDENAFIL
     Indication: PRODUCT USED FOR UNKNOWN INDICATION
     Dosage: UNK
  2. AMBRISENTAN [Suspect]
     Active Substance: AMBRISENTAN
     Indication: PULMONARY ARTERIAL HYPERTENSION
     Dosage: UNK
     Route: 065
     Dates: start: 20160808

REACTIONS (7)
  - Fatigue [Unknown]
  - General physical health deterioration [Unknown]
  - Intentional product use issue [Unknown]
  - Right ventricular failure [Unknown]
  - Dyspnoea [Unknown]
  - Condition aggravated [Unknown]
  - Palpitations [Unknown]
